FAERS Safety Report 7506129-3 (Version None)
Quarter: 2011Q2

REPORT INFORMATION
  Report Type: 
  Country: None (occurrence: None)
  Receive Date: 20110526
  Receipt Date: 20110519
  Transmission Date: 20111010
  Serious: Yes (Other)
  Sender: FDA-Public Use
  Company Number: US-TEVA-282581USA

PATIENT
  Age: 60 Year
  Sex: Male

DRUGS (2)
  1. ZIAC [Suspect]
     Indication: BLOOD PRESSURE
  2. SODIUM FLUORIDE + POTASSIUM NITRATE TOOTHPASTE [Interacting]
     Indication: SENSITIVITY OF TEETH
     Route: 004
     Dates: start: 20110323, end: 20110324

REACTIONS (6)
  - FALL [None]
  - RIB FRACTURE [None]
  - SYNCOPE [None]
  - BLOOD PRESSURE DECREASED [None]
  - DRUG INTERACTION [None]
  - ANKLE FRACTURE [None]
